FAERS Safety Report 13335896 (Version 1)
Quarter: 2017Q1

REPORT INFORMATION
  Report Type: Report from Study
  Country: US (occurrence: US)
  Receive Date: 20170314
  Receipt Date: 20170314
  Transmission Date: 20170428
  Serious: Yes (Other)
  Sender: FDA-Public Use
  Company Number: US-EMD SERONO-E2B_80061229

PATIENT
  Age: 41 Year
  Sex: Female

DRUGS (1)
  1. REBIF [Suspect]
     Active Substance: INTERFERON BETA-1A
     Indication: MULTIPLE SCLEROSIS
     Route: 058
     Dates: start: 20161212

REACTIONS (9)
  - Loss of consciousness [Unknown]
  - Dyskinesia [Unknown]
  - Seizure [Unknown]
  - Flushing [Unknown]
  - Headache [Not Recovered/Not Resolved]
  - Muscular weakness [Not Recovered/Not Resolved]
  - Crying [Unknown]
  - Asthenia [Unknown]
  - Fear of injection [Unknown]

NARRATIVE: CASE EVENT DATE: 201703
